FAERS Safety Report 8836438 (Version 1)
Quarter: 2012Q4

REPORT INFORMATION
  Report Type: Report from Study
  Country: IT (occurrence: IT)
  Receive Date: 20121011
  Receipt Date: 20121011
  Transmission Date: 20130627
  Serious: Yes (Other)
  Sender: FDA-Public Use
  Company Number: IT-CELGENEUS-083-21880-12063669

PATIENT
  Age: 81 Year
  Sex: Male

DRUGS (4)
  1. REVLIMID [Suspect]
     Indication: 5Q MINUS MDS
     Route: 048
     Dates: start: 20111201, end: 20120112
  2. REVLIMID [Suspect]
     Route: 048
     Dates: end: 20120724
  3. DARBEPOETIN ALFA [Concomitant]
     Indication: DRUG USE FOR UNKNOWN INDICATION
     Route: 065
  4. INTERFERON [Concomitant]
     Indication: DRUG USE FOR UNKNOWN INDICATION
     Route: 065

REACTIONS (3)
  - Confusional state [Unknown]
  - Disease recurrence [Unknown]
  - Leukopenia [None]
